FAERS Safety Report 6680374-1 (Version None)
Quarter: 2010Q2

REPORT INFORMATION
  Report Type: 
  Country: None (occurrence: None)
  Receive Date: 20100412
  Receipt Date: 20100325
  Transmission Date: 20101027
  Serious: Yes (Other)
  Sender: FDA-Public Use
  Company Number: CTI_01117_2010

PATIENT
  Sex: Male
  Weight: 83.9154 kg

DRUGS (4)
  1. FACTIVE [Suspect]
     Indication: SINUSITIS
     Dosage: DF
     Dates: start: 20091201
  2. OTHER ANTIINFLAMMATORY AGENTS IN COMB. [Concomitant]
  3. ZITHROMAX [Concomitant]
  4. AVELOX [Concomitant]

REACTIONS (5)
  - DIAPHRAGMALGIA [None]
  - HEPATIC ENZYME INCREASED [None]
  - MYALGIA [None]
  - NON-CARDIAC CHEST PAIN [None]
  - RASH [None]
